FAERS Safety Report 10690891 (Version 2)
Quarter: 2015Q1

REPORT INFORMATION
  Report Type: Spontaneous
  Country: US (occurrence: US)
  Receive Date: 20150105
  Receipt Date: 20150206
  Transmission Date: 20150720
  Serious: Yes (Other)
  Sender: FDA-Public Use
  Company Number: US-GLAXOSMITHKLINE-US2014GSK045422

PATIENT
  Sex: Male

DRUGS (2)
  1. VOTRIENT [Suspect]
     Active Substance: PAZOPANIB HYDROCHLORIDE
     Dosage: UNK UNK, U
     Dates: start: 20141201
  2. VOTRIENT [Suspect]
     Active Substance: PAZOPANIB HYDROCHLORIDE
     Indication: THYROID CANCER
     Dosage: UNK UNK, U
     Route: 065
     Dates: start: 20140611

REACTIONS (5)
  - Vitreous floaters [Unknown]
  - Laser therapy [Recovering/Resolving]
  - Ocular discomfort [Unknown]
  - Visual impairment [Unknown]
  - Retinal tear [Unknown]
